FAERS Safety Report 15774281 (Version 3)
Quarter: 2019Q2

REPORT INFORMATION
  Report Type: Report from Study
  Country: JP (occurrence: JP)
  Receive Date: 20181229
  Receipt Date: 20190516
  Transmission Date: 20190711
  Serious: Yes (Death, Other)
  Sender: FDA-Public Use
  Company Number: JP-AMGEN-JPNCT2018186485

PATIENT
  Age: 82 Year
  Sex: Female

DRUGS (17)
  1. DARBEPOETIN ALFA [Suspect]
     Active Substance: DARBEPOETIN ALFA
     Indication: MYELODYSPLASTIC SYNDROME
     Dosage: 240 MICROGRAM, QWK
     Route: 065
     Dates: start: 20161104, end: 20161216
  2. DARBEPOETIN ALFA [Suspect]
     Active Substance: DARBEPOETIN ALFA
     Dosage: 240 MICROGRAM
     Route: 065
     Dates: start: 20180119, end: 20180119
  3. ONON [Concomitant]
     Active Substance: PRANLUKAST
     Indication: ASTHMA
     Dosage: UNK
     Route: 048
     Dates: end: 20180222
  4. BISOLVON [Concomitant]
     Active Substance: BROMHEXINE HYDROCHLORIDE
     Indication: ASTHMA
  5. DARBEPOETIN ALFA [Suspect]
     Active Substance: DARBEPOETIN ALFA
     Dosage: 240 MICROGRAM, QWK
     Route: 065
     Dates: start: 20170105, end: 20170203
  6. MAGMITT [Concomitant]
     Active Substance: MAGNESIUM OXIDE
     Indication: CONSTIPATION
     Dosage: UNK
     Route: 048
     Dates: end: 20180222
  7. LIXIANA [Concomitant]
     Active Substance: EDOXABAN TOSYLATE
     Indication: DEEP VEIN THROMBOSIS
     Dosage: UNK
     Route: 048
     Dates: end: 20180222
  8. REMINYL [Concomitant]
     Active Substance: GALANTAMINE
     Indication: DEMENTIA ALZHEIMER^S TYPE
     Dosage: UNK
     Route: 048
     Dates: start: 20171213, end: 20180222
  9. DARBEPOETIN ALFA [Suspect]
     Active Substance: DARBEPOETIN ALFA
     Dosage: 240 MICROGRAM, Q3WK
     Route: 065
     Dates: start: 20170427, end: 20170519
  10. DARBEPOETIN ALFA [Suspect]
     Active Substance: DARBEPOETIN ALFA
     Dosage: 240 MICROGRAM, Q3WK
     Route: 065
     Dates: start: 20170601, end: 20170915
  11. DARBEPOETIN ALFA [Suspect]
     Active Substance: DARBEPOETIN ALFA
     Dosage: 240 MICROGRAM, Q3WK
     Route: 065
     Dates: start: 20171003, end: 20171226
  12. DARBEPOETIN ALFA [Suspect]
     Active Substance: DARBEPOETIN ALFA
     Dosage: 240 MICROGRAM, Q2WK
     Route: 065
     Dates: start: 20180130, end: 20180213
  13. BELSOMRA [Concomitant]
     Active Substance: SUVOREXANT
     Indication: INSOMNIA
     Dosage: UNK
     Route: 048
     Dates: end: 20180222
  14. DARBEPOETIN ALFA [Suspect]
     Active Substance: DARBEPOETIN ALFA
     Dosage: 240 MICROGRAM
     Route: 065
     Dates: start: 20161226, end: 20161226
  15. DARBEPOETIN ALFA [Suspect]
     Active Substance: DARBEPOETIN ALFA
     Dosage: 240 MICROGRAM, Q2WK
     Route: 065
     Dates: start: 20170217, end: 20170331
  16. BISOLVON [Concomitant]
     Active Substance: BROMHEXINE HYDROCHLORIDE
     Indication: ASTHMA
     Dosage: UNK
     Route: 048
     Dates: end: 20180222
  17. BLOPRESS [Concomitant]
     Active Substance: CANDESARTAN CILEXETIL
     Indication: HYPERTENSION
     Dosage: UNK
     Route: 048
     Dates: end: 20180222

REACTIONS (2)
  - Sudden death [Fatal]
  - Dementia Alzheimer^s type [Not Recovered/Not Resolved]

NARRATIVE: CASE EVENT DATE: 20171213
